FAERS Safety Report 8329510 (Version 9)
Quarter: 2014Q2

REPORT INFORMATION
  Report Type: Report from Study
  Country: US (occurrence: US)
  Receive Date: 20120110
  Receipt Date: 20140523
  Transmission Date: 20141212
  Serious: Yes (Hospitalization, Other)
  Sender: FDA-Public Use
  Company Number: US-ACTELION-A-US2012-59197

PATIENT
  Age: 77 Year
  Sex: Female

DRUGS (4)
  1. TRACLEER [Suspect]
     Indication: PULMONARY ARTERIAL HYPERTENSION
     Dosage: 125 MG, BID
     Route: 048
  2. TRACLEER [Suspect]
     Dosage: UNK
     Route: 048
  3. COUMADIN [Concomitant]
  4. PLAVIX [Concomitant]

REACTIONS (13)
  - Upper limb fracture [Unknown]
  - Limb operation [Unknown]
  - Haemoglobin decreased [Unknown]
  - Fatigue [Unknown]
  - Anaemia [Unknown]
  - Red blood cell count decreased [Unknown]
  - Haematocrit decreased [Unknown]
  - White blood cell count decreased [Not Recovered/Not Resolved]
  - Haemoglobin decreased [Unknown]
  - Arthritis [Unknown]
  - Gout [Unknown]
  - Drug dose omission [Unknown]
  - Urinary tract infection [Unknown]
